FAERS Safety Report 24712884 (Version 3)
Quarter: 2025Q1

REPORT INFORMATION
  Report Type: Spontaneous
  Country: JP (occurrence: JP)
  Receive Date: 20241209
  Receipt Date: 20250205
  Transmission Date: 20250408
  Serious: Yes (Other)
  Sender: PFIZER
  Company Number: JP-PFIZER INC-202400316385

PATIENT
  Sex: Male

DRUGS (1)
  1. COMIRNATY (RAXTOZINAMERAN) [Suspect]
     Active Substance: RAXTOZINAMERAN
     Indication: COVID-19 immunisation

REACTIONS (3)
  - Syringe issue [Unknown]
  - Injury associated with device [Unknown]
  - Skin laceration [Unknown]

NARRATIVE: CASE EVENT DATE: 20241202
